FAERS Safety Report 10165065 (Version 1)
Quarter: 2014Q2

REPORT INFORMATION
  Report Type: Spontaneous
  Country: US (occurrence: US)
  Receive Date: 20140510
  Receipt Date: 20140510
  Transmission Date: 20141212
  Serious: No
  Sender: FDA-Public Use
  Company Number: US-BRISTOL-MYERS SQUIBB COMPANY-19698752

PATIENT
  Age: 35 Year
  Sex: Female
  Weight: 102.04 kg

DRUGS (4)
  1. BYDUREON [Suspect]
     Indication: TYPE 2 DIABETES MELLITUS
     Route: 058
     Dates: start: 20131026
  2. NOVOLOG [Suspect]
     Indication: DIABETES MELLITUS
     Dosage: 1DF: 9UNITS
     Route: 058
  3. LANTUS [Suspect]
     Indication: DIABETES MELLITUS
     Dosage: 1DF: 40UNITS?INJ
     Route: 058
  4. LAMICTAL [Suspect]
     Indication: CONVULSION
     Route: 048

REACTIONS (6)
  - Blood glucose fluctuation [Recovering/Resolving]
  - Nausea [Recovering/Resolving]
  - Diarrhoea haemorrhagic [Recovering/Resolving]
  - Amnesia [Recovering/Resolving]
  - Urticaria [Recovering/Resolving]
  - Asthenia [Recovering/Resolving]
